FAERS Safety Report 11713770 (Version 6)
Quarter: 2016Q4

REPORT INFORMATION
  Report Type: Spontaneous
  Country: US (occurrence: US)
  Receive Date: 20151109
  Receipt Date: 20161215
  Transmission Date: 20170206
  Serious: Yes (Other)
  Sender: FDA-Public Use
  Company Number: PHEH2015US022979

PATIENT
  Sex: Female
  Weight: 46.72 kg

DRUGS (1)
  1. ZOFRAN [Suspect]
     Active Substance: ONDANSETRON HYDROCHLORIDE
     Indication: VOMITING IN PREGNANCY
     Dosage: 5 MG, UNK
     Route: 048
     Dates: start: 201411, end: 201501

REACTIONS (12)
  - Scar [Unknown]
  - Injury [Unknown]
  - Vaginal haemorrhage [Unknown]
  - Vaginal erosion [Unknown]
  - Product use issue [Unknown]
  - Polyhydramnios [Unknown]
  - Anxiety [Unknown]
  - Pain [Unknown]
  - Abdominal pain lower [Unknown]
  - Emotional distress [Unknown]
  - Maternal exposure during pregnancy [Unknown]
  - Anhedonia [Unknown]
